FAERS Safety Report 5712007-2 (Version None)
Quarter: 2008Q2

REPORT INFORMATION
  Report Type: 
  Country: None (occurrence: None)
  Receive Date: 20080417
  Receipt Date: 20080408
  Transmission Date: 20081010
  Serious: Yes (Death, Life-Threatening)
  Sender: FDA-Public Use
  Company Number: 200711AGG00746

PATIENT
  Age: 73 Year
  Sex: Male

DRUGS (4)
  1. AGGRASTAT (AGGRASTAT (TIROFIBAN HCI)) (25 MCG/KG, 0.15 MCG/KG) [Suspect]
     Indication: ACUTE MYOCARDIAL INFARCTION
     Dosage: (25 MCG/KG TOTAL INTRAVENOUS BOLUS), (INTRAVENOUS DRIP)
     Route: 040
     Dates: start: 20071031, end: 20071031
  2. AGGRASTAT (AGGRASTAT (TIROFIBAN HCI)) (25 MCG/KG, 0.15 MCG/KG) [Suspect]
     Indication: ACUTE MYOCARDIAL INFARCTION
     Dosage: (25 MCG/KG TOTAL INTRAVENOUS BOLUS), (INTRAVENOUS DRIP)
     Route: 040
     Dates: start: 20071031, end: 20071101
  3. CLOPIDOGREL BISULFATE [Concomitant]
  4. ENOXAPARIN SODIUM [Concomitant]

REACTIONS (3)
  - CARDIOGENIC SHOCK [None]
  - MITRAL VALVE INCOMPETENCE [None]
  - MULTI-ORGAN FAILURE [None]
